FAERS Safety Report 25638570 (Version 1)
Quarter: 2025Q3

REPORT INFORMATION
  Report Type: Spontaneous
  Country: US (occurrence: None)
  Receive Date: 20250801
  Receipt Date: 20250801
  Transmission Date: 20251020
  Serious: No
  Sender: FDA-CTU
  Company Number: None

PATIENT
  Age: 61 Year
  Sex: Male

DRUGS (5)
  1. RINVOQ [Suspect]
     Active Substance: UPADACITINIB
     Indication: Rheumatoid arthritis
     Dosage: 15 MG DAILY ORAL
     Route: 048
     Dates: start: 20240226
  2. IBUPROFEN [Concomitant]
     Active Substance: IBUPROFEN
  3. CARVEDILOL [Concomitant]
     Active Substance: CARVEDILOL
  4. Flecainide 100mg [Concomitant]
  5. SULFASALAZINE [Concomitant]
     Active Substance: SULFASALAZINE

REACTIONS (1)
  - Contusion [None]
